FAERS Safety Report 6805331-3 (Version None)
Quarter: 2010Q2

REPORT INFORMATION
  Report Type: 
  Country: None (occurrence: None)
  Receive Date: 20100628
  Receipt Date: 20071022
  Transmission Date: 20101027
  Serious: No
  Sender: FDA-Public Use
  Company Number: US-PFIZER INC-2007088711

PATIENT
  Sex: Female
  Weight: 75 kg

DRUGS (4)
  1. GENOTROPIN [Suspect]
     Indication: HYPOPITUITARISM
     Dates: start: 20050401
  2. PROZAC [Concomitant]
     Indication: FIBROMYALGIA
  3. NORTRIPTYLINE [Concomitant]
     Indication: FIBROMYALGIA
  4. OMEPRAZOLE [Concomitant]
     Indication: GASTROOESOPHAGEAL REFLUX DISEASE

REACTIONS (4)
  - DRUG DOSE OMISSION [None]
  - MIGRAINE [None]
  - SINUSITIS [None]
  - VITAMIN B12 DEFICIENCY [None]
